FAERS Safety Report 8127959-3 (Version None)
Quarter: 2012Q1

REPORT INFORMATION
  Report Type: 
  Country: None (occurrence: None)
  Receive Date: 20120210
  Receipt Date: 20091105
  Transmission Date: 20120608
  Serious: No
  Sender: FDA-Public Use
  Company Number: 2009BI036314

PATIENT
  Sex: Male

DRUGS (1)
  1. TYSABRI [Suspect]
     Indication: MULTIPLE SCLEROSIS
     Route: 042
     Dates: start: 20080219

REACTIONS (8)
  - HYPOAESTHESIA [None]
  - FATIGUE [None]
  - MUSCULOSKELETAL STIFFNESS [None]
  - BALANCE DISORDER [None]
  - MALAISE [None]
  - GAIT DISTURBANCE [None]
  - MUSCLE SPASTICITY [None]
  - ASTHENIA [None]
